FAERS Safety Report 8854838 (Version 2)
Quarter: 2012Q4

REPORT INFORMATION
  Report Type: 
  Country: US (occurrence: US)
  Receive Date: 20121023
  Receipt Date: 20121226
  Transmission Date: 20130627
  Serious: No
  Sender: FDA-Public Use
  Company Number: US-PFIZER INC-2012261999

PATIENT
  Age: 53 Year
  Sex: Male

DRUGS (12)
  1. GEODON [Suspect]
     Indication: SCHIZOPHRENIA
     Dosage: 80 mg, 1x/day (am)
     Dates: start: 200410, end: 2004
  2. GEODON [Suspect]
     Indication: PARANOID SCHIZOPHRENIA
     Dosage: 80mg a.m. and 40mg p.m.
     Dates: start: 200411, end: 2004
  3. GEODON [Suspect]
     Indication: MANIC DEPRESSIVE
     Dosage: 80mg a.m. and 80mg p.m.
     Dates: start: 200412, end: 200605
  4. GEODON [Suspect]
     Dosage: 80mg a.m. and 160mg p.m.
     Dates: start: 200606, end: 200712
  5. GEODON [Suspect]
     Dosage: 80mg a.m. and 240 mg p.m.
     Dates: start: 200801, end: 201208
  6. GEODON [Suspect]
     Dosage: 80mg a.m. and 160 mg p.m.
     Dates: start: 201209, end: 201210
  7. GEODON [Suspect]
     Dosage: 80mg a.m. and 80 mg p.m.
     Dates: start: 201211, end: 201212
  8. BENZTROPINE [Concomitant]
     Indication: DRUG SIDE EFFECT
     Dosage: UNK
     Dates: start: 2004, end: 201212
  9. PAXIL [Concomitant]
     Indication: ANTIDEPRESSANT THERAPY
     Dosage: UNK
     Dates: start: 2004, end: 201212
  10. PANTOPRAZOLE [Concomitant]
     Indication: ACID REFLUX (ESOPHAGEAL)
     Dosage: UNK
     Dates: start: 200901, end: 201212
  11. CLONAZEPAM [Concomitant]
     Indication: PANIC DISORDER
     Dosage: UNK
     Dates: start: 200904, end: 201212
  12. PAROXETINE [Concomitant]
     Indication: ANTIDEPRESSANT THERAPY
     Dosage: UNK
     Dates: start: 2004, end: 201212

REACTIONS (2)
  - Intentional overdose [Unknown]
  - Drug ineffective [Unknown]
